FAERS Safety Report 25779510 (Version 1)
Quarter: 2025Q3

REPORT INFORMATION
  Report Type: Report from Study
  Country: US (occurrence: US)
  Receive Date: 20250909
  Receipt Date: 20250909
  Transmission Date: 20251021
  Serious: No
  Sender: AGIOS PHARMACEUTICALS
  Company Number: US-AGIOS-2508US04453

PATIENT
  Age: 26 Year
  Sex: Male

DRUGS (1)
  1. MITAPIVAT [Suspect]
     Active Substance: MITAPIVAT
     Indication: Pyruvate kinase deficiency anaemia
     Route: 048
     Dates: start: 20231118

REACTIONS (11)
  - Serum ferritin increased [Unknown]
  - Lymphocyte count increased [Unknown]
  - Reticulocyte haemoglobin decreased [Unknown]
  - Platelet count increased [Unknown]
  - Blood urea nitrogen/creatinine ratio decreased [Unknown]
  - Monocyte count increased [Unknown]
  - Protein total increased [Unknown]
  - Alanine aminotransferase increased [Unknown]
  - Hepatitis C RNA decreased [Unknown]
  - Mean cell haemoglobin decreased [Unknown]
  - Red cell distribution width increased [Unknown]

NARRATIVE: CASE EVENT DATE: 20250728
